FAERS Safety Report 8679539 (Version 5)
Quarter: 2013Q3

REPORT INFORMATION
  Report Type: Spontaneous
  Country: BR (occurrence: BR)
  Receive Date: 20120724
  Receipt Date: 20130724
  Transmission Date: 20140515
  Serious: Yes (Life-Threatening, Other)
  Sender: FDA-Public Use
  Company Number: BR-SHIRE-ALL1-2012-03494

PATIENT
  Age: 56 Year
  Sex: Male

DRUGS (1)
  1. MESACOL MMX [Suspect]
     Indication: COLITIS
     Dosage: 2 DF, 1X/DAY:QD
     Route: 048
     Dates: start: 2011, end: 201209

REACTIONS (2)
  - Interstitial lung disease [Recovered/Resolved]
  - Off label use [Recovered/Resolved]
